FAERS Safety Report 6043272-2 (Version None)
Quarter: 2009Q1

REPORT INFORMATION
  Report Type: 
  Country: None (occurrence: None)
  Receive Date: 20090119
  Receipt Date: 20090115
  Transmission Date: 20090719
  Serious: Yes (Death)
  Sender: FDA-Public Use
  Company Number: US-GILEAD-2009-0019845

PATIENT

DRUGS (1)
  1. TRUVADA [Suspect]

REACTIONS (2)
  - MITOCHONDRIAL TOXICITY [None]
  - PANCREATITIS [None]
